FAERS Safety Report 8821463 (Version 1)
Quarter: 2012Q4

REPORT INFORMATION
  Report Type: 
  Country: CL (occurrence: CL)
  Receive Date: 20121002
  Receipt Date: 20121002
  Transmission Date: 20130627
  Serious: Yes (Hospitalization)
  Sender: FDA-Public Use
  Company Number: CL-009507513-1207CHL001710

PATIENT
  Age: 39 Year
  Sex: Female
  Weight: 47 kg

DRUGS (2)
  1. NUVARING [Suspect]
     Indication: CONTRACEPTION
     Dosage: delivers 0.120 mg/0.015mg per day
     Route: 067
     Dates: start: 2008
  2. PLEXUS (AMBROXOL HYDROCHLORIDE (+) DEXTROMETHORPHAN HYDROBROMIDE) [Concomitant]
     Dosage: UNK

REACTIONS (2)
  - Nasal septal operation [Unknown]
  - Metrorrhagia [Unknown]
